FAERS Safety Report 22339109 (Version 1)
Quarter: 2023Q2

REPORT INFORMATION
  Report Type: Spontaneous
  Country: US (occurrence: None)
  Receive Date: 20230517
  Receipt Date: 20230517
  Transmission Date: 20230722
  Serious: Yes (Other)
  Sender: FDA-Public Use
  Company Number: None

PATIENT
  Age: 8 Year
  Sex: Male

DRUGS (7)
  1. HEMLIBRA [Suspect]
     Active Substance: EMICIZUMAB-KXWH
     Indication: Factor VIII deficiency
     Dosage: OTHER QUANTITY : 105MG/0.7ML;?FREQUENCY : EVERY OTHER WEEK;?
     Route: 058
     Dates: start: 20230224
  2. ADYNOVATE 1000 UNIT SDV [Concomitant]
  3. HEP LOCK SYR [Concomitant]
  4. LIDOCAINE/PRILOCAINE CRE [Concomitant]
  5. MULTIVITAMIN CHW CHILD [Concomitant]
  6. SOD CHL 0.9% FLSH 10ML/SYR [Concomitant]
  7. SOD CHL 0.9%STRL FLSH 10ML/SYR [Concomitant]

REACTIONS (1)
  - Viral infection [None]

NARRATIVE: CASE EVENT DATE: 20230425
